FAERS Safety Report 7677128-6 (Version None)
Quarter: 2011Q3

REPORT INFORMATION
  Report Type: 
  Country: None (occurrence: None)
  Receive Date: 20110808
  Receipt Date: 20110725
  Transmission Date: 20111222
  Serious: Yes (Death)
  Sender: FDA-Public Use
  Company Number: 1000022583

PATIENT
  Age: 96 Year
  Sex: Female

DRUGS (9)
  1. DESLORATADINE [Concomitant]
  2. ESCITALOPRAM [Suspect]
     Dosage: ORAL
     Route: 048
     Dates: end: 20110330
  3. SYMBICORT [Concomitant]
  4. ASPIRIN [Concomitant]
  5. LEVOTHYROXINE SODIUM [Concomitant]
  6. LEXOMIL (BROMAZEPAM) (TABLETS) [Suspect]
     Dosage: ORAL
     Route: 048
     Dates: end: 20110330
  7. TAREG (VALSARTAN) [Concomitant]
  8. ISOPTINE (VERAPAMIIL HYDROCHLORIDE) [Concomitant]
  9. SINGULAIR [Concomitant]

REACTIONS (3)
  - FALL [None]
  - DEHYDRATION [None]
  - CONFUSIONAL STATE [None]
